FAERS Safety Report 10058218 (Version 3)
Quarter: 2014Q2

REPORT INFORMATION
  Report Type: Spontaneous
  Country: US (occurrence: US)
  Receive Date: 20140404
  Receipt Date: 20140508
  Transmission Date: 20141212
  Serious: No
  Sender: FDA-Public Use
  Company Number: US-PFIZER INC-2014093779

PATIENT
  Age: 54 Year
  Sex: Female

DRUGS (3)
  1. XELJANZ [Suspect]
     Indication: RHEUMATOID ARTHRITIS
     Dosage: 5 MG, 2X/DAY
     Route: 048
     Dates: start: 20140101
  2. LYRICA [Suspect]
     Dosage: UNK
  3. ENSURE [Suspect]
     Dosage: UNK

REACTIONS (4)
  - Nausea [Unknown]
  - Flatulence [Unknown]
  - Pain in extremity [Unknown]
  - Peripheral swelling [Unknown]
